FAERS Safety Report 23631403 (Version 1)
Quarter: 2024Q1

REPORT INFORMATION
  Report Type: Spontaneous
  Country: US (occurrence: None)
  Receive Date: 20240313
  Receipt Date: 20240313
  Transmission Date: 20240409
  Serious: No
  Sender: FDA-Public Use
  Company Number: None

PATIENT
  Sex: Male

DRUGS (3)
  1. LENALIDOMIDE [Suspect]
     Active Substance: LENALIDOMIDE
     Indication: Plasma cell myeloma
     Dosage: FREQUENCY : DAILY;?
     Route: 048
     Dates: start: 202307
  2. LENALIDOMIDE [Concomitant]
     Active Substance: LENALIDOMIDE
  3. REVLIVID [Concomitant]

REACTIONS (2)
  - Therapy interrupted [None]
  - Neutrophil count decreased [None]
